FAERS Safety Report 13191243 (Version 1)
Quarter: 2017Q1

REPORT INFORMATION
  Report Type: Spontaneous
  Country: US (occurrence: US)
  Receive Date: 20170206
  Receipt Date: 20170206
  Transmission Date: 20170428
  Serious: Yes (Other)
  Sender: FDA-Public Use
  Company Number: None

PATIENT
  Age: 27 Year
  Sex: Male
  Weight: 78 kg

DRUGS (8)
  1. NAXIFELAR [Suspect]
     Active Substance: CEPHALEXIN
     Indication: GENITAL INFECTION
     Dosage: QUANTITY:20 CAPSULE(S);?
     Route: 048
     Dates: start: 20170204, end: 20170205
  2. CEFALEXINA [Suspect]
     Active Substance: CEPHALEXIN
     Indication: GENITAL INFECTION
  3. CEFALEXINA [Suspect]
     Active Substance: CEPHALEXIN
     Indication: PHARYNGITIS
  4. IBUPROFEN. [Concomitant]
     Active Substance: IBUPROFEN
  5. NIXELAF-C [Suspect]
     Active Substance: CEPHALEXIN
     Indication: PHARYNGITIS
  6. BUTILIOCIN [Concomitant]
  7. NIXELAF-C [Suspect]
     Active Substance: CEPHALEXIN
     Indication: GENITAL INFECTION
  8. NAXIFELAR [Suspect]
     Active Substance: CEPHALEXIN
     Indication: PHARYNGITIS
     Dosage: QUANTITY:20 CAPSULE(S);?
     Route: 048
     Dates: start: 20170204, end: 20170205

REACTIONS (3)
  - Panic attack [None]
  - Penile size reduced [None]
  - Penis disorder [None]

NARRATIVE: CASE EVENT DATE: 20170205
